FAERS Safety Report 8606495-1 (Version None)
Quarter: 2012Q3

REPORT INFORMATION
  Report Type: 
  Country: None (occurrence: None)
  Receive Date: 20120820
  Receipt Date: 20120814
  Transmission Date: 20120928
  Serious: Yes (Other)
  Sender: FDA-Public Use
  Company Number: GXKR2012DE002622

PATIENT
  Age: 70 Year
  Sex: Female

DRUGS (1)
  1. CIPROFLOXACIN HCL [Suspect]
     Indication: CYSTITIS
     Route: 042

REACTIONS (2)
  - PAIN [None]
  - MUSCLE RUPTURE [None]
